FAERS Safety Report 8347303-6 (Version None)
Quarter: 2012Q2

REPORT INFORMATION
  Report Type: 
  Country: None (occurrence: None)
  Receive Date: 20120509
  Receipt Date: 20120503
  Transmission Date: 20120825
  Serious: Yes (Hospitalization)
  Sender: FDA-Public Use
  Company Number: GB-ROCHE-1065208

PATIENT
  Age: 60 Year
  Sex: Male

DRUGS (6)
  1. METHOTREXATE [Concomitant]
     Indication: RHEUMATOID ARTHRITIS
     Route: 058
  2. ALENDRONIC ACID [Concomitant]
     Indication: RHEUMATOID ARTHRITIS
     Route: 048
  3. ACTEMRA [Suspect]
     Indication: RHEUMATOID ARTHRITIS
     Route: 042
     Dates: start: 20110419, end: 20110729
  4. FOLIC ACID [Concomitant]
     Indication: RHEUMATOID ARTHRITIS
     Route: 048
  5. PREDNISOLONE [Concomitant]
     Indication: RHEUMATOID ARTHRITIS
     Route: 048
  6. UNSPECIFIED DRUG [Concomitant]
     Indication: RHEUMATOID ARTHRITIS

REACTIONS (6)
  - INFECTION [None]
  - ERYTHEMA [None]
  - CELLULITIS [None]
  - OEDEMA PERIPHERAL [None]
  - CHILLS [None]
  - HYPERSENSITIVITY [None]
